FAERS Safety Report 6191237-2 (Version None)
Quarter: 2009Q2

REPORT INFORMATION
  Report Type: 
  Country: None (occurrence: None)
  Receive Date: 20090513
  Receipt Date: 20090513
  Transmission Date: 20091009
  Serious: Yes (Life-Threatening, Hospitalization)
  Sender: FDA-Public Use
  Company Number: None

PATIENT
  Age: 50 Year
  Sex: Female
  Weight: 74.8435 kg

DRUGS (1)
  1. BUDPRION (THREW AWAY BOTTLE UNKNOWN MG) [Suspect]
     Indication: DEPRESSION

REACTIONS (3)
  - FEELING OF DESPAIR [None]
  - SLEEP DISORDER [None]
  - SUICIDE ATTEMPT [None]
